FAERS Safety Report 8887170 (Version 2)
Quarter: 2012Q4

REPORT INFORMATION
  Report Type: 
  Country: JP (occurrence: JP)
  Receive Date: 20121105
  Receipt Date: 20121113
  Transmission Date: 20130627
  Serious: Yes (Death, Other)
  Sender: FDA-Public Use
  Company Number: JP-PFIZER INC-2012276108

PATIENT
  Age: 73 Year
  Sex: Female

DRUGS (2)
  1. LIPITOR [Suspect]
     Indication: HYPERCHOLESTEROLAEMIA
     Dosage: 5 mg, 1x/day
     Route: 048
     Dates: start: 20121024, end: 20121026
  2. MUCOSTA [Concomitant]
     Dosage: 100 mg, 3x/day
     Route: 048
     Dates: end: 20121026

REACTIONS (2)
  - Sudden death [Fatal]
  - Cardiac failure acute [Unknown]
